FAERS Safety Report 11646227 (Version 1)
Quarter: 2015Q4

REPORT INFORMATION
  Report Type: Spontaneous
  Country: US (occurrence: US)
  Receive Date: 20151020
  Receipt Date: 20151020
  Transmission Date: 20160304
  Serious: No
  Sender: FDA-Public Use
  Company Number: US-ROCHE-1623155

PATIENT
  Sex: Male
  Weight: 95.34 kg

DRUGS (2)
  1. ESBRIET [Suspect]
     Active Substance: PIRFENIDONE
     Indication: IDIOPATHIC PULMONARY FIBROSIS
     Dosage: ONE 267 MG CAPSULE THRICE A DAY
     Route: 048
     Dates: start: 20150728
  2. ESBRIET [Suspect]
     Active Substance: PIRFENIDONE
     Dosage: SIX CAPSULES PER DAY
     Route: 048

REACTIONS (8)
  - Fatigue [Unknown]
  - Decreased appetite [Unknown]
  - Feeding disorder [Unknown]
  - Nausea [Unknown]
  - Weight decreased [Unknown]
  - Bedridden [Unknown]
  - Somnolence [Unknown]
  - Hypersomnia [Unknown]
